FAERS Safety Report 24287287 (Version 1)
Quarter: 2024Q3

REPORT INFORMATION
  Report Type: Spontaneous
  Country: US (occurrence: None)
  Receive Date: 20240904
  Receipt Date: 20240904
  Transmission Date: 20241017
  Serious: Yes (Death)
  Sender: Public
  Company Number: None

PATIENT
  Age: 77 Year
  Sex: Male

DRUGS (2)
  1. CAPECITABINE [Suspect]
     Active Substance: CAPECITABINE
     Indication: Colon cancer
     Dosage: FREQUENCY : TWICE A DAY;?1 TABLETTWICE DAILY FOR 14 DAYS, THEN 7 OFF?
     Route: 048
     Dates: start: 20240815, end: 20240901
  2. CAPECITABINE [Suspect]
     Active Substance: CAPECITABINE
     Indication: Colon cancer
     Dosage: FREQUENCY : TWICE A DAY;?I BID FOR 14 DAYS, 7 OFF     ?
     Route: 048
     Dates: start: 20240815, end: 20240901

REACTIONS (1)
  - Death [None]

NARRATIVE: CASE EVENT DATE: 20240901
